FAERS Safety Report 8261329-2 (Version None)
Quarter: 2012Q2

REPORT INFORMATION
  Report Type: 
  Country: None (occurrence: None)
  Receive Date: 20120402
  Receipt Date: 20120319
  Transmission Date: 20120825
  Serious: Yes (Hospitalization)
  Sender: FDA-Public Use
  Company Number: 2012PV000016

PATIENT
  Age: 48 Year
  Sex: Male

DRUGS (15)
  1. CIPROFLOXACIN [Suspect]
     Indication: SEPSIS
     Dosage: 500 MG;BID;IV
     Route: 042
     Dates: start: 20120218, end: 20120227
  2. COVERSYL /00790702/ [Concomitant]
  3. DOMPERIDONE [Concomitant]
  4. VALACYCLOVIR HYDROCHLORIDE [Concomitant]
  5. ADANCOR [Concomitant]
  6. PROCORALAN [Concomitant]
  7. ATENOLOL [Concomitant]
  8. PANTOPRAZOLE [Concomitant]
  9. DEPOCYT [Suspect]
     Indication: PROLYMPHOCYTIC LEUKAEMIA
     Dosage: 50 MG;QOW;INTH
     Route: 037
     Dates: start: 20120114, end: 20120131
  10. AZATHIOPRINE [Concomitant]
  11. AUGMENTIN '125' [Suspect]
     Indication: SEPSIS
     Dosage: 1 GM;TID;IV
     Route: 042
     Dates: start: 20120218, end: 20120227
  12. ATORVASTATIN [Concomitant]
  13. CLOPIDOGREL BISULFATE AND ASPIRIN [Concomitant]
  14. BACTRIM [Concomitant]
  15. GAVISCON /00237601/ [Concomitant]

REACTIONS (9)
  - THROMBOCYTOPENIA [None]
  - NEOPLASM PROGRESSION [None]
  - PROLYMPHOCYTIC LEUKAEMIA [None]
  - HEADACHE [None]
  - SEPSIS [None]
  - PAIN [None]
  - PYREXIA [None]
  - AGRANULOCYTOSIS [None]
  - ANAEMIA [None]
